FAERS Safety Report 11138747 (Version 3)
Quarter: 2015Q4

REPORT INFORMATION
  Report Type: Report from Study
  Country: US (occurrence: US)
  Receive Date: 20150527
  Receipt Date: 20151118
  Transmission Date: 20160304
  Serious: Yes (Other)
  Sender: FDA-Public Use
  Company Number: US-AMGEN-USASL2015050319

PATIENT
  Age: 24 Year
  Sex: Female

DRUGS (1)
  1. ENBREL [Suspect]
     Active Substance: ETANERCEPT
     Indication: RHEUMATOID ARTHRITIS
     Dosage: 50 MG, QWK
     Route: 065
     Dates: start: 20140801

REACTIONS (16)
  - Food allergy [Unknown]
  - Dyspnoea [Recovered/Resolved]
  - Choking [Recovered/Resolved]
  - Swollen tongue [Unknown]
  - Arthralgia [Unknown]
  - Pericarditis [Recovered/Resolved]
  - Mouth swelling [Unknown]
  - Middle insomnia [Recovered/Resolved]
  - Anaphylactic reaction [Unknown]
  - Autoimmune disorder [Unknown]
  - Pruritus [Unknown]
  - Cough [Unknown]
  - Hypersensitivity [Unknown]
  - Palpitations [Recovered/Resolved]
  - Chest pain [Recovered/Resolved]
  - Throat tightness [Unknown]

NARRATIVE: CASE EVENT DATE: 201504
